FAERS Safety Report 8846615 (Version 2)
Quarter: 2015Q3

REPORT INFORMATION
  Report Type: Report from Study
  Country: US (occurrence: US)
  Receive Date: 20121017
  Receipt Date: 20150820
  Transmission Date: 20151125
  Serious: Yes (Other)
  Sender: FDA-Public Use
  Company Number: US-ROCHE-1140275

PATIENT
  Sex: Female

DRUGS (6)
  1. PROTROPIN [Suspect]
     Active Substance: SOMATREM
     Indication: FAILURE TO THRIVE
     Route: 058
  2. PROTROPIN [Suspect]
     Active Substance: SOMATREM
     Route: 058
     Dates: start: 19910919
  3. LEVOTHYROXINE SODIUM. [Concomitant]
     Active Substance: LEVOTHYROXINE SODIUM
     Route: 048
  4. NUTROPIN [Suspect]
     Active Substance: SOMATROPIN
     Indication: FAILURE TO THRIVE
     Route: 058
     Dates: start: 19970707
  5. LEVOTHYROXINE SODIUM. [Concomitant]
     Active Substance: LEVOTHYROXINE SODIUM
     Indication: HYPOTHYROIDISM
     Route: 048
     Dates: start: 199906
  6. PROTROPIN [Suspect]
     Active Substance: SOMATREM
     Route: 058
     Dates: start: 19930913

REACTIONS (3)
  - Renal failure [Unknown]
  - Hypertension [Unknown]
  - Hernia [Unknown]
